FAERS Safety Report 6509018-6 (Version None)
Quarter: 2009Q4

REPORT INFORMATION
  Report Type: 
  Country: None (occurrence: None)
  Receive Date: 20091221
  Receipt Date: 20090914
  Transmission Date: 20100525
  Serious: No
  Sender: FDA-Public Use
  Company Number: US-ASTRAZENECA-2009SE13077

PATIENT
  Age: 25063 Day
  Sex: Male
  Weight: 79.4 kg

DRUGS (1)
  1. CRESTOR [Suspect]
     Indication: BLOOD CHOLESTEROL INCREASED
     Route: 048

REACTIONS (3)
  - ABASIA [None]
  - LIMB DISCOMFORT [None]
  - MYALGIA [None]
